FAERS Safety Report 6556744-9 (Version None)
Quarter: 2010Q1

REPORT INFORMATION
  Report Type: 
  Country: None (occurrence: None)
  Receive Date: 20100128
  Receipt Date: 20100120
  Transmission Date: 20100710
  Serious: Yes (Hospitalization, Other)
  Sender: FDA-Public Use
  Company Number: US-JNJFOC-20100105523

PATIENT
  Sex: Male

DRUGS (1)
  1. LEVAQUIN [Suspect]
     Indication: BRONCHITIS
     Route: 048

REACTIONS (4)
  - CONFUSIONAL STATE [None]
  - DISORIENTATION [None]
  - MUSCLE SPASMS [None]
  - TENDON RUPTURE [None]
